FAERS Safety Report 10233408 (Version 12)
Quarter: 2019Q3

REPORT INFORMATION
  Report Type: Spontaneous
  Country: US (occurrence: US)
  Receive Date: 20140612
  Receipt Date: 20190807
  Transmission Date: 20191004
  Serious: Yes (Hospitalization, Other)
  Sender: FDA-Public Use
  Company Number: US-DSJP-DSU-2014-00302-1

PATIENT

DRUGS (10)
  1. BENICAR HCT [Suspect]
     Active Substance: HYDROCHLOROTHIAZIDE\OLMESARTAN MEDOXOMIL
     Dosage: 40/25 MG, QD
     Dates: start: 2010, end: 2010
  2. BENICAR HCT [Suspect]
     Active Substance: HYDROCHLOROTHIAZIDE\OLMESARTAN MEDOXOMIL
     Dosage: 40/25 MG, QD
     Route: 048
  3. BENICAR HCT [Suspect]
     Active Substance: HYDROCHLOROTHIAZIDE\OLMESARTAN MEDOXOMIL
     Indication: HYPERTENSION
     Dosage: 40/12.5 MG, QD
     Route: 048
     Dates: end: 2008
  4. BENICAR [Suspect]
     Active Substance: OLMESARTAN MEDOXOMIL
     Dosage: 5 MG, UNK
  5. BENICAR HCT [Suspect]
     Active Substance: HYDROCHLOROTHIAZIDE\OLMESARTAN MEDOXOMIL
     Dosage: 40/12.5 MG, QD
     Dates: start: 201011, end: 201012
  6. BENICAR [Suspect]
     Active Substance: OLMESARTAN MEDOXOMIL
     Indication: HYPERTENSION
     Dosage: 20 MG, QD
     Route: 048
     Dates: start: 20080128, end: 20130619
  7. COUMADIN [Concomitant]
     Active Substance: WARFARIN SODIUM
     Indication: PRODUCT USED FOR UNKNOWN INDICATION
  8. BENICAR HCT [Suspect]
     Active Substance: HYDROCHLOROTHIAZIDE\OLMESARTAN MEDOXOMIL
     Dosage: 40/12.5 MG, QD
     Dates: end: 2010
  9. BENICAR HCT [Suspect]
     Active Substance: HYDROCHLOROTHIAZIDE\OLMESARTAN MEDOXOMIL
     Dosage: 40/12.5 MG, BID
     Dates: start: 200811
  10. STEROIDS [Suspect]
     Active Substance: UNSPECIFIED INGREDIENT
     Indication: COELIAC DISEASE
     Dosage: UNK
     Dates: start: 20101022

REACTIONS (39)
  - Oesophageal candidiasis [Not Recovered/Not Resolved]
  - Cytomegalovirus colitis [Recovering/Resolving]
  - Deep vein thrombosis [Unknown]
  - Ophthalmic herpes simplex [Unknown]
  - Large intestinal ulcer [Unknown]
  - Sinus tachycardia [Unknown]
  - Wheezing [Unknown]
  - Clostridium difficile colitis [Recovered/Resolved]
  - Spinal compression fracture [Not Recovered/Not Resolved]
  - Adrenal insufficiency [Not Recovered/Not Resolved]
  - Inflammatory bowel disease [Unknown]
  - Decubitus ulcer [Unknown]
  - Cataract [Recovered/Resolved]
  - Transaminases increased [Unknown]
  - Diverticulitis [Unknown]
  - Depression [Unknown]
  - Muscle spasms [Not Recovered/Not Resolved]
  - Renal disorder [Not Recovered/Not Resolved]
  - Hyperhidrosis [Unknown]
  - Urinary tract infection [Unknown]
  - Respiratory distress [Unknown]
  - Pancreatitis acute [Recovered/Resolved]
  - Diverticulum [Unknown]
  - Scar [Not Recovered/Not Resolved]
  - Coeliac disease [Not Recovered/Not Resolved]
  - Steroid diabetes [Unknown]
  - Infection [Not Recovered/Not Resolved]
  - Gastrointestinal bacterial overgrowth [Unknown]
  - Osteoporosis [Not Recovered/Not Resolved]
  - Gastrooesophageal reflux disease [Unknown]
  - Myocardial infarction [Unknown]
  - Syncope [Not Recovered/Not Resolved]
  - Sprue-like enteropathy [Not Recovered/Not Resolved]
  - Hiccups [Unknown]
  - Peritonitis [Not Recovered/Not Resolved]
  - Pneumoperitoneum [Unknown]
  - Haemorrhoids [Not Recovered/Not Resolved]
  - Secondary immunodeficiency [Unknown]
  - Nasal herpes [Not Recovered/Not Resolved]

NARRATIVE: CASE EVENT DATE: 20080711
